FAERS Safety Report 10519626 (Version 1)
Quarter: 2014Q4

REPORT INFORMATION
  Report Type: Spontaneous
  Country: US (occurrence: None)
  Receive Date: 20141014
  Receipt Date: 20141014
  Transmission Date: 20150528
  Serious: Yes (Hospitalization)
  Sender: FDA-Public Use
  Company Number: None

PATIENT
  Age: 66 Year
  Sex: Male
  Weight: 89.2 kg

DRUGS (1)
  1. METHOHEXITAL [Suspect]
     Active Substance: METHOHEXITAL
     Dosage: MG, EVERYDAY, PO
     Route: 048
     Dates: start: 20140202

REACTIONS (3)
  - Oral pain [None]
  - Candida infection [None]
  - Oropharyngeal pain [None]

NARRATIVE: CASE EVENT DATE: 20140202
